FAERS Safety Report 7060794-6 (Version None)
Quarter: 2010Q4

REPORT INFORMATION
  Report Type: 
  Country: None (occurrence: None)
  Receive Date: 20101025
  Receipt Date: 20101013
  Transmission Date: 20110411
  Serious: Yes (Hospitalization)
  Sender: FDA-Public Use
  Company Number: KR-WATSON-2010-13787

PATIENT
  Age: 54 Year
  Sex: Female

DRUGS (4)
  1. FLUOROURACIL [Suspect]
     Indication: PANCREATIC CARCINOMA METASTATIC
     Dosage: 400 MG/M2, SINGLE BOLUS
     Route: 040
  2. FLUOROURACIL [Suspect]
     Dosage: 2400 MG/M2, INFUSION
     Route: 042
  3. OXALIPLATIN [Suspect]
     Indication: PANCREATIC CARCINOMA METASTATIC
     Dosage: 85 MG/M2, SINGLE INFUSION
     Route: 042
  4. LEUCOVORIN CALCIUM [Suspect]
     Indication: PANCREATIC CARCINOMA METASTATIC
     Dosage: 200 MG/M2, SINGLE INFUSION
     Route: 042

REACTIONS (2)
  - HYPERAMMONAEMIC ENCEPHALOPATHY [None]
  - HYPOCAPNIA [None]
